FAERS Safety Report 5838621-1 (Version None)
Quarter: 2008Q3

REPORT INFORMATION
  Report Type: 
  Country: None (occurrence: None)
  Receive Date: 20080808
  Receipt Date: 20080610
  Transmission Date: 20090109
  Serious: No
  Sender: FDA-Public Use
  Company Number: A0732255A

PATIENT
  Age: 18 Year
  Sex: Female

DRUGS (2)
  1. ALTABAX [Suspect]
     Route: 061
     Dates: start: 20080609, end: 20080609
  2. NO CONCURRENT MEDICATION [Concomitant]

REACTIONS (4)
  - APPLICATION SITE IRRITATION [None]
  - DIZZINESS [None]
  - PALPITATIONS [None]
  - PANIC ATTACK [None]
